FAERS Safety Report 7340938-9 (Version None)
Quarter: 2011Q1

REPORT INFORMATION
  Report Type: 
  Country: None (occurrence: None)
  Receive Date: 20110309
  Receipt Date: 20100810
  Transmission Date: 20110831
  Serious: No
  Sender: FDA-Public Use
  Company Number: US-ABBOTT-10P-163-0663470-00

PATIENT
  Sex: Female
  Weight: 93.07 kg

DRUGS (3)
  1. ZOLOFT [Concomitant]
     Indication: DEPRESSION
  2. LUPRON DEPOT [Suspect]
     Indication: ENDOMETRIOSIS
     Dates: start: 20100727
  3. SYNTHROID [Concomitant]
     Indication: HYPOTHYROIDISM

REACTIONS (3)
  - INSOMNIA [None]
  - METRORRHAGIA [None]
  - MUSCLE SPASMS [None]
